FAERS Safety Report 8413616-2 (Version None)
Quarter: 2012Q2

REPORT INFORMATION
  Report Type: 
  Country: None (occurrence: None)
  Receive Date: 20120605
  Receipt Date: 20120521
  Transmission Date: 20120825
  Serious: Yes (Other)
  Sender: FDA-Public Use
  Company Number: IT-ROCHE-1074109

PATIENT

DRUGS (5)
  1. HERCEPTIN [Suspect]
     Indication: BREAST CANCER
     Dosage: LOADING DOSE ON DAY 1 OF EACH CYCLE
     Route: 042
  2. PEGYLATED LIPOSOMAL DOXORUBICIN [Suspect]
     Indication: BREAST CANCER
     Dosage: ON DAY 1
     Route: 042
  3. FLUOROURACIL [Suspect]
     Indication: BREAST CANCER
     Dosage: 200 MG/M2 AS A CONTINUOUS INFUSION FROM DAY 1 THROUGH DAY 21 TO BE REPEATED EVERY 21 DAYS FOR 8 COUR
  4. HERCEPTIN [Suspect]
     Dosage: ON DAY 2 OF EACH CYCLE
     Route: 042
  5. CISPLATIN [Suspect]
     Indication: BREAST CANCER
     Dosage: ON DAY 1
     Route: 042

REACTIONS (9)
  - PALMAR-PLANTAR ERYTHRODYSAESTHESIA SYNDROME [None]
  - LEUKOPENIA [None]
  - DEEP VEIN THROMBOSIS [None]
  - NEUTROPENIA [None]
  - ANAEMIA [None]
  - DIARRHOEA [None]
  - NAUSEA [None]
  - ASTHENIA [None]
  - VOMITING [None]
